FAERS Safety Report 7998753-9 (Version None)
Quarter: 2011Q4

REPORT INFORMATION
  Report Type: 
  Country: None (occurrence: None)
  Receive Date: 20111212
  Receipt Date: 20111205
  Transmission Date: 20120403
  Serious: Yes (Hospitalization)
  Sender: FDA-Public Use
  Company Number: 2011027925

PATIENT
  Age: 59 Year
  Sex: Female
  Weight: 58.9676 kg

DRUGS (21)
  1. HIZENTRA [Suspect]
     Indication: HYPOGAMMAGLOBULINAEMIA
     Dates: start: 20110321
  2. HIZENTRA [Suspect]
     Indication: HYPOGAMMAGLOBULINAEMIA
     Dates: start: 20110613
  3. HIZENTRA [Suspect]
     Indication: HYPOGAMMAGLOBULINAEMIA
     Dates: start: 20110815, end: 20110822
  4. DIOVAN [Concomitant]
  5. CALCIUM CARBONATE [Concomitant]
  6. HIZENTRA [Suspect]
     Indication: HYPOGAMMAGLOBULINAEMIA
     Dates: start: 20110613
  7. SINGULAIR [Concomitant]
  8. HIZENTRA [Suspect]
     Indication: HYPOGAMMAGLOBULINAEMIA
  9. ASTEPRO [Concomitant]
  10. SUDAFED 12 HOUR [Concomitant]
  11. CLARITIN [Concomitant]
  12. HIZENTRA [Suspect]
     Indication: HYPOGAMMAGLOBULINAEMIA
     Dosage: (9 G 1X/WEEK, (45 ML) 2-3 SITES OVER 1.5-2 HOURS SUBCUTANEOUS)
     Route: 058
     Dates: start: 20110101
  13. AMBIEN [Concomitant]
  14. BYSTOLIC [Concomitant]
  15. NAPROXEN [Concomitant]
  16. HIZENTRA [Suspect]
     Indication: HYPOGAMMAGLOBULINAEMIA
     Dates: start: 20110815, end: 20110822
  17. HIZENTRA [Suspect]
     Indication: HYPOGAMMAGLOBULINAEMIA
     Dosage: SUBCUTANEOUS
     Route: 058
  18. XANAX [Concomitant]
  19. VERAMYST (FLUTICASONE) [Concomitant]
  20. HIZENTRA [Suspect]
     Indication: HYPOGAMMAGLOBULINAEMIA
     Dosage: (9 G 1X/WEEK, INFUSED 45ML VIA 2-3 SITES OVER 1.5-2 HOURS SUBCUTANEOUS)
     Route: 058
     Dates: start: 20110315
  21. MUCINEX [Concomitant]

REACTIONS (13)
  - SINUSITIS [None]
  - RHINITIS [None]
  - INFUSION SITE ERYTHEMA [None]
  - INFUSION SITE SWELLING [None]
  - INFUSION SITE IRRITATION [None]
  - HEADACHE [None]
  - MUSCLE SPASMS [None]
  - HYPERTENSION [None]
  - EAR INFECTION [None]
  - PHARYNGITIS [None]
  - INFUSION SITE EXTRAVASATION [None]
  - EYE INFECTION [None]
  - BLOOD PRESSURE ABNORMAL [None]
